FAERS Safety Report 6519571-4 (Version None)
Quarter: 2009Q4

REPORT INFORMATION
  Report Type: 
  Country: None (occurrence: None)
  Receive Date: 20091228
  Receipt Date: 20091217
  Transmission Date: 20100525
  Serious: Yes (Other)
  Sender: FDA-Public Use
  Company Number: US-JNJFOC-20091003253

PATIENT
  Age: 7 Year
  Sex: Male
  Weight: 23.59 kg

DRUGS (5)
  1. TYLENOL (CAPLET) [Suspect]
     Route: 048
     Dates: start: 20090912
  2. TYLENOL (CAPLET) [Suspect]
     Indication: PYREXIA
     Dosage: 160 TO 320 MG
     Route: 048
     Dates: start: 20090912
  3. TYLENOL [Suspect]
     Route: 048
     Dates: start: 20090912
  4. TYLENOL [Suspect]
     Indication: PYREXIA
     Dosage: 160 TO 320 MG
     Route: 048
     Dates: start: 20090912
  5. MULTI-VITAMINS [Concomitant]
     Indication: VITAMIN SUPPLEMENTATION

REACTIONS (4)
  - NASOPHARYNGITIS [None]
  - PYREXIA [None]
  - TRANSMISSION OF AN INFECTIOUS AGENT VIA A MEDICINAL PRODUCT [None]
  - VOMITING [None]
